FAERS Safety Report 15410319 (Version 2)
Quarter: 2019Q3

REPORT INFORMATION
  Report Type: Report from Study
  Country: US (occurrence: US)
  Receive Date: 20180921
  Receipt Date: 20190911
  Transmission Date: 20191004
  Serious: Yes (Hospitalization, Other)
  Sender: FDA-Public Use
  Company Number: PHEH2018US038174

PATIENT
  Sex: Female

DRUGS (1)
  1. ENTRESTO [Suspect]
     Active Substance: SACUBITRIL\VALSARTAN
     Indication: PRODUCT USED FOR UNKNOWN INDICATION
     Dosage: UNK
     Route: 048

REACTIONS (10)
  - Dehydration [Unknown]
  - Heart rate decreased [Unknown]
  - Eye disorder [Unknown]
  - Balance disorder [Unknown]
  - Dysphonia [Unknown]
  - Glaucoma [Unknown]
  - Breast cancer [Unknown]
  - Malaise [Unknown]
  - Hypoacusis [Unknown]
  - Visual impairment [Unknown]
